FAERS Safety Report 17535767 (Version 1)
Quarter: 2020Q1

REPORT INFORMATION
  Report Type: Spontaneous
  Country: ES (occurrence: ES)
  Receive Date: 20200313
  Receipt Date: 20200313
  Transmission Date: 20200409
  Serious: Yes (Other)
  Sender: FDA-Public Use
  Company Number: ES-SA-2020SA061359

PATIENT
  Age: 47 Year
  Sex: Male

DRUGS (4)
  1. FOLINIC ACID [Concomitant]
     Active Substance: LEUCOVORIN
     Route: 065
  2. IRINOTECAN [Concomitant]
     Active Substance: IRINOTECAN
     Route: 065
  3. AFLIBERCEPT [Suspect]
     Active Substance: AFLIBERCEPT
     Indication: COLORECTAL ADENOCARCINOMA
     Route: 065
  4. FLUOROURACIL. [Concomitant]
     Active Substance: FLUOROURACIL
     Route: 065

REACTIONS (8)
  - Dermatitis acneiform [Unknown]
  - Rash papular [Unknown]
  - Disease progression [Unknown]
  - Acne [Unknown]
  - Papule [Unknown]
  - Rash pustular [Unknown]
  - Pustule [Unknown]
  - Dermoid cyst [Unknown]
